FAERS Safety Report 8151366-0 (Version None)
Quarter: 2012Q1

REPORT INFORMATION
  Report Type: 
  Country: None (occurrence: None)
  Receive Date: 20120220
  Receipt Date: 20120216
  Transmission Date: 20120608
  Serious: Yes (Life-Threatening)
  Sender: FDA-Public Use
  Company Number: FR-ROCHE-1024234

PATIENT
  Sex: Female

DRUGS (14)
  1. EPREX [Suspect]
     Indication: ANAEMIA
     Dates: start: 20111024
  2. PREDNISONE TAB [Concomitant]
  3. VALACYCLOVIR HYDROCHLORIDE [Concomitant]
  4. CYCLOSPORINE [Suspect]
     Dates: start: 20111116
  5. NEXIUM [Concomitant]
  6. FOLINORAL [Concomitant]
  7. UMULINE [Concomitant]
  8. LASIX [Concomitant]
  9. MYCOPHENOLATE MOFETIL (CELLCEPT) [Suspect]
     Indication: IMMUNOSUPPRESSION
     Dates: start: 20111024
  10. VFEND [Suspect]
     Indication: INFECTION
     Dates: start: 20111024
  11. ACETAMINOPHEN [Concomitant]
  12. PROGRAF [Suspect]
     Indication: IMMUNOSUPPRESSION
     Dates: start: 20111107, end: 20111116
  13. CYCLOSPORINE [Suspect]
     Indication: IMMUNOSUPPRESSION
     Dates: start: 20111024, end: 20111109
  14. INVANZ [Suspect]
     Indication: INFECTION
     Dates: start: 20111110, end: 20111114

REACTIONS (1)
  - POSTERIOR REVERSIBLE ENCEPHALOPATHY SYNDROME [None]
